FAERS Safety Report 7716404-5 (Version None)
Quarter: 2011Q3

REPORT INFORMATION
  Report Type: 
  Country: None (occurrence: None)
  Receive Date: 20110829
  Receipt Date: 20110818
  Transmission Date: 20111222
  Serious: Yes (Hospitalization)
  Sender: FDA-Public Use
  Company Number: GB-MERCK-1106GBR00078

PATIENT
  Age: 53 Year
  Sex: Male
  Weight: 93 kg

DRUGS (19)
  1. ROSUVASTATIN CALCIUM [Concomitant]
     Route: 065
     Dates: start: 20050101
  2. OMEGA-3 ACID ETHYL ESTERS [Concomitant]
     Route: 065
     Dates: start: 20010101
  3. EXENATIDE [Concomitant]
     Route: 065
     Dates: start: 20070101
  4. NITROGLYCERIN [Concomitant]
     Route: 065
     Dates: start: 20010101
  5. FOLIC ACID [Concomitant]
     Route: 065
     Dates: start: 20010101
  6. METFORMIN [Concomitant]
     Route: 065
     Dates: start: 20010101
  7. ISOSORBIDE [Concomitant]
     Route: 065
     Dates: start: 20010101
  8. GLICLAZIDE [Concomitant]
     Route: 065
     Dates: start: 20010101
  9. FLUOXETINE [Concomitant]
     Route: 065
     Dates: start: 20030101
  10. JANUVIA [Suspect]
     Indication: DIABETES MELLITUS
     Route: 048
     Dates: start: 20110427, end: 20110430
  11. CLONAZEPAM [Concomitant]
     Route: 065
     Dates: start: 20050101
  12. LISINOPRIL [Concomitant]
     Route: 048
     Dates: start: 20030101
  13. DILTIAZEM HYDROCHLORIDE [Concomitant]
     Route: 065
     Dates: start: 20010101
  14. MORPHINE SULFATE [Concomitant]
     Route: 065
     Dates: start: 20060101
  15. MORPHINE SULFATE [Concomitant]
     Route: 065
     Dates: start: 20060101
  16. FUROSEMIDE [Concomitant]
     Route: 065
     Dates: start: 20010101
  17. INSULIN [Concomitant]
     Route: 065
  18. PRAMIPEXOLE [Concomitant]
     Route: 065
     Dates: start: 20060101
  19. ALUMINUM HYDROXIDE AND MAGNESIUM CARBONATE [Concomitant]
     Route: 065
     Dates: start: 20010101

REACTIONS (6)
  - CIRCULATORY COLLAPSE [None]
  - AMNESIA [None]
  - AGITATION [None]
  - DISTURBANCE IN ATTENTION [None]
  - IRRITABILITY [None]
  - HYPERHIDROSIS [None]
